FAERS Safety Report 23746572 (Version 1)
Quarter: 2024Q2

REPORT INFORMATION
  Report Type: Spontaneous
  Country: US (occurrence: US)
  Receive Date: 20240416
  Receipt Date: 20240416
  Transmission Date: 20240716
  Serious: Yes (Other)
  Sender: FDA-Public Use
  Company Number: US-002147023-NVSC2024US077207

PATIENT

DRUGS (1)
  1. KYMRIAH [Suspect]
     Active Substance: TISAGENLECLEUCEL
     Indication: B-cell type acute leukaemia
     Dosage: 3.0E6 CAR-POSITIVE VIABLE T-CELLS/KG BODY WEIGHT, ONCE/SINGLE
     Route: 042

REACTIONS (1)
  - Post-depletion B-cell recovery [Unknown]
